FAERS Safety Report 4598710-9 (Version None)
Quarter: 2005Q1

REPORT INFORMATION
  Report Type: 
  Country: None (occurrence: None)
  Receive Date: 20050301
  Receipt Date: 20050301
  Transmission Date: 20050727
  Serious: Yes (Other)
  Sender: FDA-Public Use
  Company Number: None

PATIENT
  Age: 50 Year
  Sex: Female
  Weight: 106.5953 kg

DRUGS (2)
  1. PAROXETINE HCL [Suspect]
     Indication: PANIC DISORDER
     Dosage: 1 PER DAY ORAL
     Route: 048
  2. BUSPIRONE [Suspect]
     Indication: PANIC DISORDER
     Dosage: 2 PER DAY ORAL
     Route: 048

REACTIONS (5)
  - BURNING SENSATION [None]
  - DISEASE RECURRENCE [None]
  - PANIC DISORDER [None]
  - PARAESTHESIA [None]
  - PHARMACEUTICAL PRODUCT COMPLAINT [None]
